FAERS Safety Report 9685200 (Version 1)
Quarter: 2013Q4

REPORT INFORMATION
  Report Type: Spontaneous
  Country: US (occurrence: None)
  Receive Date: 20131112
  Receipt Date: 20131112
  Transmission Date: 20140711
  Serious: No
  Sender: FDA-Public Use
  Company Number: None

PATIENT
  Age: 82 Year
  Sex: Female
  Weight: 79.38 kg

DRUGS (9)
  1. AMMONIUM LACTATE LOTION [Suspect]
     Indication: WOUND
     Dosage: 225 G USED AS LOTION DAILY TWICE SEVERE BURNING ON LEGS
     Dates: start: 20131017, end: 20131017
  2. ULORIC [Concomitant]
  3. GLYBURIDE [Concomitant]
  4. PLAVIX [Concomitant]
  5. LIPITOR [Concomitant]
  6. NIFEDIPINE [Concomitant]
  7. PENTOXIFYLLINE [Concomitant]
  8. TYLENOL 8 C [Concomitant]
  9. ASPIRIN [Concomitant]

REACTIONS (1)
  - Skin burning sensation [None]
